FAERS Safety Report 15418949 (Version 3)
Quarter: 2020Q1

REPORT INFORMATION
  Report Type: Spontaneous
  Country: US (occurrence: US)
  Receive Date: 20180924
  Receipt Date: 20200220
  Transmission Date: 20200409
  Serious: No
  Sender: FDA-Public Use
  Company Number: US-SA-2018SA264097

PATIENT
  Age: 33 Year
  Sex: Female

DRUGS (7)
  1. SEROQUEL [Concomitant]
     Active Substance: QUETIAPINE FUMARATE
  2. ARNUITY ELLIPTA [Concomitant]
     Active Substance: FLUTICASONE FUROATE
  3. CLONAZEPAM. [Concomitant]
     Active Substance: CLONAZEPAM
  4. AUBAGIO [Suspect]
     Active Substance: TERIFLUNOMIDE
     Indication: MULTIPLE SCLEROSIS
     Dosage: 14 MG, QD
     Route: 048
     Dates: start: 20180725
  5. GABAPENTIN. [Concomitant]
     Active Substance: GABAPENTIN
  6. BACLOFEN. [Concomitant]
     Active Substance: BACLOFEN
  7. XARELTO [Concomitant]
     Active Substance: RIVAROXABAN

REACTIONS (4)
  - Depressed mood [Unknown]
  - Unevaluable event [Unknown]
  - Alopecia [Unknown]
  - Headache [Unknown]

NARRATIVE: CASE EVENT DATE: 20180901
